FAERS Safety Report 4996809-6 (Version None)
Quarter: 2006Q2

REPORT INFORMATION
  Report Type: 
  Country: None (occurrence: None)
  Receive Date: 20060509
  Receipt Date: 20060428
  Transmission Date: 20061013
  Serious: Yes (Hospitalization, Disabling)
  Sender: FDA-Public Use
  Company Number: US-MERCK-0605USA00256

PATIENT
  Sex: Male

DRUGS (2)
  1. VIOXX [Suspect]
     Route: 048
     Dates: start: 20030101, end: 20040930
  2. BEXTRA [Suspect]
     Route: 065
     Dates: start: 20030101, end: 20040901

REACTIONS (1)
  - MYOCARDIAL INFARCTION [None]
